FAERS Safety Report 6300401-0 (Version None)
Quarter: 2009Q3

REPORT INFORMATION
  Report Type: 
  Country: None (occurrence: None)
  Receive Date: 20090803
  Receipt Date: 20090720
  Transmission Date: 20100115
  Serious: Yes (Hospitalization, Other)
  Sender: FDA-Public Use
  Company Number: ADR10592009

PATIENT
  Age: 52 Year
  Sex: Male

DRUGS (4)
  1. AMLODIPINE [Suspect]
     Dosage: 325 MG
  2. ATENOLOL [Concomitant]
  3. ZOPICLONE [Concomitant]
  4. LOSARTAN POTASSIUM TABLETS [Concomitant]

REACTIONS (2)
  - ATRIOVENTRICULAR BLOCK FIRST DEGREE [None]
  - OVERDOSE [None]
